FAERS Safety Report 10176895 (Version 1)
Quarter: 2014Q2

REPORT INFORMATION
  Report Type: Spontaneous
  Country: US (occurrence: None)
  Receive Date: 20140515
  Receipt Date: 20140515
  Transmission Date: 20141212
  Serious: Yes (Life-Threatening, Hospitalization)
  Sender: FDA-Public Use
  Company Number: None

PATIENT
  Age: 65 Year
  Sex: Male
  Weight: 106.6 kg

DRUGS (1)
  1. YERVOY BRISTOL MEYER SQUIBB [Suspect]
     Indication: METASTATIC MALIGNANT MELANOMA
     Dates: start: 20130601, end: 20130930

REACTIONS (1)
  - Gastrointestinal infection [None]
